FAERS Safety Report 26045296 (Version 1)
Quarter: 2025Q4

REPORT INFORMATION
  Report Type: Spontaneous
  Country: AR (occurrence: AR)
  Receive Date: 20251114
  Receipt Date: 20251114
  Transmission Date: 20260118
  Serious: Yes (Hospitalization, Other)
  Sender: ROCHE
  Company Number: AR-002147023-NVSC2025AR174097

PATIENT
  Age: 15 Year
  Sex: Male

DRUGS (2)
  1. XOLAIR [Suspect]
     Active Substance: OMALIZUMAB
     Indication: Asthma
     Dosage: 450 MG (EVERY 4 WEEKS)
     Route: 058
     Dates: start: 20250314
  2. Alercas [Concomitant]
     Indication: Product used for unknown indication
     Dosage: 120 MG, QD (EVERY 1 DAY) (STRENGTH: 120)
     Route: 065

REACTIONS (2)
  - Asthma [Unknown]
  - Cough [Recovered/Resolved]

NARRATIVE: CASE EVENT DATE: 20251013
